FAERS Safety Report 8325696-3 (Version None)
Quarter: 2012Q2

REPORT INFORMATION
  Report Type: 
  Country: None (occurrence: None)
  Receive Date: 20120501
  Receipt Date: 20120501
  Transmission Date: 20120825
  Serious: Yes (Hospitalization)
  Sender: FDA-Public Use
  Company Number: None

PATIENT
  Age: 85 Year
  Sex: Female

DRUGS (9)
  1. ALENDRONATE SODIUM [Concomitant]
  2. SPIRONOLACTONE [Suspect]
     Indication: HYPERTENSION
     Dosage: 100.0 MG
     Route: 048
  3. CYANOCOBALAMIN [Concomitant]
  4. FERROUS SULFATE TAB [Concomitant]
  5. AMLODIPINE [Concomitant]
  6. LEVOTHYROXINE SODIUM [Concomitant]
  7. LISINOPRIL [Concomitant]
     Indication: HYPERTENSION
     Dosage: 40MG
     Route: 048
  8. PRAVASTATIN [Concomitant]
  9. SITAGLIPTIN-METFORMIN 50/500 [Concomitant]

REACTIONS (2)
  - LABORATORY TEST ABNORMAL [None]
  - HYPERKALAEMIA [None]
